FAERS Safety Report 5155293-2 (Version None)
Quarter: 2006Q4

REPORT INFORMATION
  Report Type: 
  Country: None (occurrence: None)
  Receive Date: 20061121
  Receipt Date: 20061004
  Transmission Date: 20070319
  Serious: Yes (Hospitalization)
  Sender: FDA-Public Use
  Company Number: AU-AVENTIS-200620301GDDC

PATIENT
  Age: 40 Year
  Sex: Female

DRUGS (5)
  1. ARAVA [Suspect]
     Indication: RHEUMATOID ARTHRITIS
  2. KARVEA [Suspect]
     Indication: HYPERTENSION
     Route: 048
     Dates: start: 20060929
  3. ACTONEL COMBI [Concomitant]
     Indication: OSTEOPOROSIS
     Dosage: DOSE: 1 TABLET
     Dates: start: 20060105
  4. PREDNISONE TAB [Concomitant]
     Indication: RHEUMATOID ARTHRITIS
  5. MOBIC [Concomitant]
     Indication: RHEUMATOID ARTHRITIS
     Route: 048

REACTIONS (2)
  - CONVULSION [None]
  - GRAND MAL CONVULSION [None]
